FAERS Safety Report 20920538 (Version 2)
Quarter: 2022Q2

REPORT INFORMATION
  Report Type: Report from Study
  Country: US (occurrence: US)
  Receive Date: 20220606
  Receipt Date: 20220623
  Transmission Date: 20220721
  Serious: Yes (Hospitalization, Other)
  Sender: FDA-Public Use
  Company Number: US-BAXTER-2022BAX011390

PATIENT
  Age: 4 Year
  Sex: Male
  Weight: 20.6 kg

DRUGS (12)
  1. CYCLOPHOSPHAMIDE [Suspect]
     Active Substance: CYCLOPHOSPHAMIDE
     Indication: B precursor type acute leukaemia
     Dosage: DAY 1, CURRENT REGIMEN
     Route: 042
     Dates: start: 20220426
  2. CYCLOPHOSPHAMIDE [Suspect]
     Active Substance: CYCLOPHOSPHAMIDE
     Dosage: LAST DOSE PRIOR TO ADVERSE EVENT
     Route: 042
     Dates: start: 20220426, end: 20220426
  3. CYTARABINE [Suspect]
     Active Substance: CYTARABINE
     Indication: B precursor type acute leukaemia
     Dosage: REGIMEN #1; 1-4, 8-11;CURRENT REFGIMEN
     Route: 042
     Dates: start: 20220426
  4. CYTARABINE [Suspect]
     Active Substance: CYTARABINE
     Dosage: LAST DOSE OF IV CYTARABINE PRIOR TO THE SERIOUS ADVERSE EVENT
     Route: 042
     Dates: start: 20220506, end: 20220506
  5. MERCAPTOPURINE [Suspect]
     Active Substance: MERCAPTOPURINE
     Indication: B precursor type acute leukaemia
     Dosage: 47MG PO DAYS 1-14
     Route: 048
     Dates: start: 20220426
  6. MERCAPTOPURINE [Suspect]
     Active Substance: MERCAPTOPURINE
     Dosage: LAST DOSE PRIOR TO THE SERIOUS ADVERSE EVENT
     Route: 048
     Dates: start: 20220509, end: 20220509
  7. VINCRISTINE SULFATE [Suspect]
     Active Substance: VINCRISTINE SULFATE
     Indication: B precursor type acute leukaemia
     Dosage: FIRST DOSE, 1.2 MG, DAY 15,22
     Route: 042
     Dates: start: 20220510
  8. VINCRISTINE SULFATE [Suspect]
     Active Substance: VINCRISTINE SULFATE
     Dosage: LAST DOSES PRIOR TO THE SERIOUS ADVERSE EVENT
     Route: 042
     Dates: start: 20220517, end: 20220517
  9. METHOTREXATE [Suspect]
     Active Substance: METHOTREXATE
     Indication: B precursor type acute leukaemia
     Dosage: 12 MG,IT DAY 1,8,15,22;REGIMEN #1
     Route: 037
     Dates: start: 20220510
  10. METHOTREXATE [Suspect]
     Active Substance: METHOTREXATE
     Dosage: LAST DOSES PRIOR TO THE SERIOUS ADVERSE EVENT
     Route: 037
     Dates: start: 20220517, end: 20220517
  11. PEGASPARGASE [Suspect]
     Active Substance: PEGASPARGASE
     Indication: B precursor type acute leukaemia
     Dosage: 1950 MG IV DAY 15;IU/M2; REGIMEN #1
     Route: 042
     Dates: start: 20220510
  12. PEGASPARGASE [Suspect]
     Active Substance: PEGASPARGASE
     Dosage: LAST DOSE PRIOR TO THE SERIOUS ADVERSE EVENT
     Route: 042
     Dates: start: 20220510, end: 20220510

REACTIONS (1)
  - Febrile neutropenia [Recovered/Resolved]

NARRATIVE: CASE EVENT DATE: 20220518
